FAERS Safety Report 7230502-4 (Version None)
Quarter: 2011Q1

REPORT INFORMATION
  Report Type: 
  Country: None (occurrence: None)
  Receive Date: 20110118
  Receipt Date: 20110105
  Transmission Date: 20110831
  Serious: Yes (Hospitalization, Other)
  Sender: FDA-Public Use
  Company Number: PHEH2007US15775

PATIENT
  Sex: Female

DRUGS (2)
  1. AREDIA [Suspect]
  2. ZOMETA [Suspect]

REACTIONS (41)
  - NECK MASS [None]
  - HYPERTENSION [None]
  - DEPRESSION [None]
  - EPISTAXIS [None]
  - AORTIC VALVE CALCIFICATION [None]
  - CARDIAC FAILURE [None]
  - BURSITIS [None]
  - ANXIETY [None]
  - HYPONATRAEMIA [None]
  - CONFUSIONAL STATE [None]
  - AORTIC STENOSIS [None]
  - TACHYCARDIA [None]
  - DIARRHOEA [None]
  - BACK PAIN [None]
  - MICTURITION URGENCY [None]
  - INTERVERTEBRAL DISC DISORDER [None]
  - LUMBAR SPINAL STENOSIS [None]
  - OSTEOLYSIS [None]
  - LEFT ATRIAL DILATATION [None]
  - MULTIPLE MYELOMA [None]
  - FLATULENCE [None]
  - COMPRESSION FRACTURE [None]
  - COUGH [None]
  - INTERVERTEBRAL DISC PROTRUSION [None]
  - CEREBELLOPONTINE ANGLE TUMOUR [None]
  - ANAEMIA [None]
  - SPLENOMEGALY [None]
  - HEPATIC LESION [None]
  - CLAVICLE FRACTURE [None]
  - CHEST PAIN [None]
  - INTERVERTEBRAL DISC DEGENERATION [None]
  - ABDOMINAL PAIN [None]
  - OSTEOPOROSIS [None]
  - OSTEONECROSIS OF JAW [None]
  - PAROTID GLAND ENLARGEMENT [None]
  - TRICUSPID VALVE INCOMPETENCE [None]
  - FATIGUE [None]
  - DYSPNOEA [None]
  - FACET JOINT SYNDROME [None]
  - MYELODYSPLASTIC SYNDROME [None]
  - PLASMACYTOSIS [None]
